FAERS Safety Report 7225449-3 (Version None)
Quarter: 2011Q1

REPORT INFORMATION
  Report Type: 
  Country: None (occurrence: None)
  Receive Date: 20110113
  Receipt Date: 20110110
  Transmission Date: 20110831
  Serious: Yes (Other)
  Sender: FDA-Public Use
  Company Number: US-PFIZER INC-HQWYE695211OCT04

PATIENT
  Sex: Female

DRUGS (4)
  1. PREMARIN [Suspect]
     Indication: MENOPAUSAL SYMPTOMS
  2. PREMARIN [Suspect]
     Indication: HORMONE REPLACEMENT THERAPY
     Dosage: UNK
     Dates: start: 19870101
  3. PROVERA [Suspect]
     Indication: HORMONE REPLACEMENT THERAPY
     Dosage: UNK
     Dates: start: 19870101
  4. PROVERA [Suspect]
     Indication: MENOPAUSAL SYMPTOMS

REACTIONS (2)
  - ENDOMETRIAL CANCER [None]
  - BREAST CANCER FEMALE [None]
